FAERS Safety Report 16260743 (Version 1)
Quarter: 2019Q2

REPORT INFORMATION
  Report Type: Spontaneous
  Country: US (occurrence: US)
  Receive Date: 20190327
  Receipt Date: 20190327
  Transmission Date: 20190711
  Serious: No
  Sender: FDA-Public Use
  Company Number: None

PATIENT
  Sex: Male

DRUGS (1)
  1. TACROLIMUS (ACCORD) 1MG ACCORD HEALTHCARE [Suspect]
     Active Substance: TACROLIMUS
     Indication: PRODUCT USED FOR UNKNOWN INDICATION
     Route: 048
     Dates: start: 20181018, end: 20190320

REACTIONS (4)
  - Dizziness [None]
  - Agranulocytosis [None]
  - Palpitations [None]
  - White blood cell count decreased [None]
